FAERS Safety Report 22520696 (Version 2)
Quarter: 2023Q2

REPORT INFORMATION
  Report Type: Spontaneous
  Country: ES (occurrence: ES)
  Receive Date: 20230605
  Receipt Date: 20230607
  Transmission Date: 20230722
  Serious: Yes (Other)
  Sender: FDA-Public Use
  Company Number: ES-TEVA-2023-ES-2887829

PATIENT
  Age: 62 Year
  Sex: Female
  Weight: 90 kg

DRUGS (27)
  1. ALPRAZOLAM [Interacting]
     Active Substance: ALPRAZOLAM
     Indication: Personality disorder
     Dosage: 0.5 MILLIGRAM (0-0-1-0-0)
     Route: 065
  2. FUROSEMIDE [Interacting]
     Active Substance: FUROSEMIDE
     Indication: Hypertension
     Dosage: 40 MILLIGRAM, QD (DAILY)
     Route: 065
     Dates: start: 2014
  3. QUETIAPINE [Interacting]
     Active Substance: QUETIAPINE
     Indication: Personality disorder
     Dosage: 400 MILLIGRAM, QD (DAILY)
     Route: 065
  4. QUETIAPINE [Interacting]
     Active Substance: QUETIAPINE
     Dosage: 0.5 MILLIGRAM, QD (DAILY)
     Route: 065
  5. MANIDIPINE [Interacting]
     Active Substance: MANIDIPINE
     Indication: Hypertension
     Dosage: 10 MILLIGRAM, QD (DAILY)
     Route: 065
     Dates: start: 2014
  6. GABAPENTIN [Interacting]
     Active Substance: GABAPENTIN
     Indication: Arthralgia
     Dosage: 300 MILLIGRAM, QD (DAILY)
     Route: 065
     Dates: start: 2019
  7. VALSARTAN [Interacting]
     Active Substance: VALSARTAN
     Indication: Hypertension
     Dosage: 320 MILLIGRAM, QD (DAILY)
     Route: 065
     Dates: start: 2014
  8. PRAMIPEXOLE [Suspect]
     Active Substance: PRAMIPEXOLE
     Indication: Parkinsonism
     Dosage: 1.05 MILLIGRAM, 1-0-0-0
     Route: 065
  9. METFORMIN [Suspect]
     Active Substance: METFORMIN HYDROCHLORIDE
     Indication: Diabetes mellitus
     Dosage: 1.05 MILLIGRAM, QD (DAILY)
     Route: 065
  10. METFORMIN [Suspect]
     Active Substance: METFORMIN HYDROCHLORIDE
     Dosage: 1000 MILLIGRAM, QD (DAILY)
     Route: 065
     Dates: start: 2010
  11. CALCIFEDIOL [Concomitant]
     Active Substance: CALCIFEDIOL
     Indication: Vitamin D deficiency
     Dosage: 0.0089 MILLIGRAM DAILY; 0.266 MG 1 PER MONTH
     Route: 065
  12. INDACATEROL [Concomitant]
     Active Substance: INDACATEROL
     Indication: Chronic obstructive pulmonary disease
     Dosage: 85 MICROGRAM
     Route: 065
  13. ACETAMINOPHEN [Concomitant]
     Active Substance: ACETAMINOPHEN
     Indication: Arthralgia
     Dosage: 650 MG PRESCRIBED: 1-1-1-0; USED: 1-1-1-0
     Route: 065
     Dates: start: 2019
  14. TRAMADOL [Concomitant]
     Active Substance: TRAMADOL
     Indication: Arthralgia
     Dosage: 100 MG/ML; DOSAGE PRESCRIBED, USED: ON-DEMAND
     Route: 065
  15. TRAMADOL [Concomitant]
     Active Substance: TRAMADOL
     Dosage: 75 MILLIGRAM
     Route: 065
  16. GLYCOPYRROLATE [Concomitant]
     Active Substance: GLYCOPYRROLATE
     Indication: Chronic obstructive pulmonary disease
     Dosage: 43 MCG PRESCRIBED: 1 EVERY 24H; USED: 1 EVERY 24H
     Route: 065
  17. LIRAGLUTIDE [Concomitant]
     Active Substance: LIRAGLUTIDE
     Indication: Hypertension
     Dosage: 6 MG/ML PRESCRIBED REGIMEN, USED: 1 EVERY 7 DAYS
     Route: 065
  18. PANTOPRAZOLE [Concomitant]
     Active Substance: PANTOPRAZOLE
     Indication: Gastrooesophageal reflux disease
     Dosage: 40 MG DOSAGE PRESCRIBED, USED: 1-0-0-0
     Route: 065
     Dates: start: 2016
  19. PIMOZIDE [Concomitant]
     Active Substance: PIMOZIDE
     Indication: Personality disorder
     Dosage: 1 MILLIGRAM (0-0-1-0-0)
     Route: 065
  20. ATORVASTATIN [Concomitant]
     Active Substance: ATORVASTATIN
     Indication: Hypercholesterolaemia
     Dosage: 40 MG DOSAGE PRESCRIBED, USED: 0-0-1-0
     Route: 065
  21. KETAZOLAM [Concomitant]
     Active Substance: KETAZOLAM
     Indication: Hallucination
     Dosage: 15 MG PRESCRIPTION DOSAGE, USED: 0-0-0-1
     Route: 065
     Dates: start: 2016
  22. CLOPIDOGREL [Concomitant]
     Active Substance: CLOPIDOGREL BISULFATE
     Indication: Prophylaxis
     Dosage: 75 MG DOSAGE PRESCRIBED, USED: 0-1-0-0-0
     Route: 065
     Dates: start: 2018
  23. EMPAGLIFLOZIN [Concomitant]
     Active Substance: EMPAGLIFLOZIN
     Indication: Hypertension
     Dosage: 5 MILLIGRAM
     Route: 065
  24. VORTIOXETINE [Concomitant]
     Active Substance: VORTIOXETINE
     Indication: Personality disorder
     Dosage: 15 MG; PRESCRIPTION, USED: 1-0-0-0
     Route: 065
  25. AMISULPRIDE [Concomitant]
     Active Substance: AMISULPRIDE
     Indication: Personality disorder
     Dosage: 100 MILLIGRAM (0-0-0-0-0.5)
     Route: 065
  26. ALBUTEROL [Concomitant]
     Active Substance: ALBUTEROL
     Indication: Chronic obstructive pulmonary disease
     Dosage: 100 MCG/IN. DOSAGE PRESCRIBED, USED: ON-DEMAND
     Route: 065
     Dates: start: 2016
  27. LORMETAZEPAM [Concomitant]
     Active Substance: LORMETAZEPAM
     Indication: Personality disorder
     Dosage: 2 MG; PRESCRIBED REGIMEN, USED: 0-0-0-1
     Route: 065

REACTIONS (6)
  - Hallucination [Recovered/Resolved]
  - Parkinsonism [Recovered/Resolved]
  - Hypotension [Recovered/Resolved]
  - Hypoglycaemia [Recovered/Resolved]
  - Somnolence [Recovered/Resolved]
  - Drug interaction [Recovered/Resolved]
